FAERS Safety Report 20830473 (Version 1)
Quarter: 2022Q2

REPORT INFORMATION
  Report Type: Spontaneous
  Country: CA (occurrence: None)
  Receive Date: 20220514
  Receipt Date: 20220514
  Transmission Date: 20220720
  Serious: Yes (Other)
  Sender: FDA-Public Use
  Company Number: CA-ROCHE-3089013

PATIENT

DRUGS (3)
  1. OCRELIZUMAB [Suspect]
     Active Substance: OCRELIZUMAB
     Indication: Relapsing-remitting multiple sclerosis
     Route: 042
  2. COVID-19 VACCINE NOS [Suspect]
     Active Substance: COVID-19 VACCINE NOS
     Indication: COVID-19 immunisation
     Route: 065
  3. AMOXICILLIN [Concomitant]
     Active Substance: AMOXICILLIN

REACTIONS (10)
  - Balance disorder [Not Recovered/Not Resolved]
  - Clumsiness [Not Recovered/Not Resolved]
  - Cystitis [Not Recovered/Not Resolved]
  - Fall [Not Recovered/Not Resolved]
  - Fatigue [Not Recovered/Not Resolved]
  - Gait disturbance [Not Recovered/Not Resolved]
  - Hypersomnia [Not Recovered/Not Resolved]
  - Nasal disorder [Not Recovered/Not Resolved]
  - Stress fracture [Not Recovered/Not Resolved]
  - Urinary tract infection [Not Recovered/Not Resolved]
